FAERS Safety Report 9092436 (Version 1)
Quarter: 2013Q1

REPORT INFORMATION
  Report Type: Report from Study
  Country: US (occurrence: US)
  Receive Date: 20130201
  Receipt Date: 20130201
  Transmission Date: 20140127
  Serious: No
  Sender: FDA-Public Use
  Company Number: US-ABBOTT-12P-163-1026785-00

PATIENT
  Age: 69 Year
  Sex: Female

DRUGS (7)
  1. HUMIRA [Suspect]
     Indication: CROHN^S DISEASE
     Route: 058
     Dates: start: 20121127, end: 20121127
  2. HUMIRA [Suspect]
     Route: 058
     Dates: start: 20121211, end: 20121211
  3. HUMIRA [Suspect]
     Route: 058
  4. AZATHIOPRINE [Concomitant]
     Indication: CROHN^S DISEASE
     Dosage: DAILY
     Route: 048
  5. ENTOCORT [Concomitant]
     Indication: CROHN^S DISEASE
     Dosage: DAILY
     Route: 048
  6. CLONAZEPAM [Concomitant]
     Indication: ANXIETY
     Dosage: 2-3 TABLETS DAILY
     Route: 048
  7. CLONAZEPAM [Concomitant]
     Indication: CROHN^S DISEASE

REACTIONS (7)
  - Dyspepsia [Not Recovered/Not Resolved]
  - Pain [Not Recovered/Not Resolved]
  - Diarrhoea [Not Recovered/Not Resolved]
  - Drug dose omission [Not Recovered/Not Resolved]
  - Drug dose omission [Not Recovered/Not Resolved]
  - Incorrect product storage [Unknown]
  - Pain [Not Recovered/Not Resolved]
